FAERS Safety Report 18445124 (Version 1)
Quarter: 2020Q4

REPORT INFORMATION
  Report Type: Report from Study
  Country: US (occurrence: US)
  Receive Date: 20201030
  Receipt Date: 20201030
  Transmission Date: 20210114
  Serious: Yes (Death)
  Sender: FDA-Public Use
  Company Number: US-BAYER-2020-234023

PATIENT
  Age: 15 Year
  Sex: Male
  Weight: 56.69 kg

DRUGS (3)
  1. ADEMPAS [Suspect]
     Active Substance: RIOCIGUAT
     Indication: PULMONARY ARTERIAL HYPERTENSION
     Dosage: 1.0 MG, TID
     Route: 048
     Dates: start: 20191017
  2. TRACLEER [Concomitant]
     Active Substance: BOSENTAN
     Dosage: UNK
  3. REMODULIN [Concomitant]
     Active Substance: TREPROSTINIL
     Dosage: UNK

REACTIONS (3)
  - Product use issue [None]
  - Death [Fatal]
  - Off label use [None]

NARRATIVE: CASE EVENT DATE: 20201027
